FAERS Safety Report 25592497 (Version 1)
Quarter: 2025Q3

REPORT INFORMATION
  Report Type: Spontaneous
  Country: US (occurrence: US)
  Receive Date: 20250722
  Receipt Date: 20250722
  Transmission Date: 20251020
  Serious: No
  Sender: LUNDBECK
  Company Number: US-LUNDBECK-DKLU4017161

PATIENT
  Age: 24 Year
  Sex: Female

DRUGS (2)
  1. ONFI [Suspect]
     Active Substance: CLOBAZAM
     Indication: Product used for unknown indication
  2. FELBAMATE [Suspect]
     Active Substance: FELBAMATE
     Indication: Product used for unknown indication

REACTIONS (2)
  - Eye disorder [Unknown]
  - Hair disorder [Unknown]
